FAERS Safety Report 6473336-0 (Version None)
Quarter: 2009Q4

REPORT INFORMATION
  Report Type: 
  Country: None (occurrence: None)
  Receive Date: 20091204
  Receipt Date: 20080908
  Transmission Date: 20100525
  Serious: Yes (Other)
  Sender: FDA-Public Use
  Company Number: DE-ELI_LILLY_AND_COMPANY-DE200807004566

PATIENT
  Sex: Male
  Weight: 92.9 kg

DRUGS (6)
  1. BYETTA [Suspect]
     Indication: TYPE 2 DIABETES MELLITUS
     Dosage: 5 UG, 2/D
     Route: 058
     Dates: start: 20071201, end: 20080501
  2. INSULIN [Concomitant]
     Dosage: UNK, UNKNOWN
     Route: 065
  3. RAMIPRIL [Concomitant]
     Dosage: UNK, UNKNOWN
     Route: 065
  4. ASPIRIN [Concomitant]
     Dosage: 1 D/F, UNKNOWN
     Route: 065
  5. METFORMIN HCL [Concomitant]
     Dosage: 2 D/F, UNKNOWN
     Route: 065
  6. GLIMEPIRIDE [Concomitant]
     Dosage: 1 D/F, UNKNOWN
     Route: 065

REACTIONS (8)
  - ABDOMINAL DISTENSION [None]
  - ABDOMINAL PAIN [None]
  - CONSTIPATION [None]
  - FATIGUE [None]
  - LIPASE INCREASED [None]
  - MALAISE [None]
  - PANCREATITIS [None]
  - WEIGHT DECREASED [None]
